FAERS Safety Report 8254500 (Version 3)
Quarter: 2014Q2

REPORT INFORMATION
  Report Type: Spontaneous
  Country: BR (occurrence: BR)
  Receive Date: 20111118
  Receipt Date: 20140508
  Transmission Date: 20141212
  Serious: Yes (Hospitalization)
  Sender: FDA-Public Use
  Company Number: BR-US-EMD SERONO, INC.-7095146

PATIENT
  Sex: Male

DRUGS (6)
  1. REBIF [Suspect]
     Indication: RELAPSING-REMITTING MULTIPLE SCLEROSIS
     Dates: start: 200705
  2. RIVOTRIL [Concomitant]
     Indication: PRODUCT USED FOR UNKNOWN INDICATION
  3. SEROQUEL                           /01270901/ [Concomitant]
     Indication: PRODUCT USED FOR UNKNOWN INDICATION
  4. SUPRADYN                           /00453001/ [Concomitant]
     Indication: PRODUCT USED FOR UNKNOWN INDICATION
  5. AMITRIPTYLINE [Concomitant]
     Indication: PRODUCT USED FOR UNKNOWN INDICATION
  6. BROMAZEPAM [Concomitant]
     Indication: PRODUCT USED FOR UNKNOWN INDICATION

REACTIONS (7)
  - Femur fracture [Recovered/Resolved]
  - Fall [Recovered/Resolved]
  - Balance disorder [Recovered/Resolved]
  - Dysphagia [Recovering/Resolving]
  - Central nervous system lesion [Recovering/Resolving]
  - Injection site nodule [Recovering/Resolving]
  - Wrong technique in drug usage process [Unknown]
